FAERS Safety Report 22221345 (Version 1)
Quarter: 2023Q2

REPORT INFORMATION
  Report Type: Report from Study
  Country: US (occurrence: US)
  Receive Date: 20230418
  Receipt Date: 20230418
  Transmission Date: 20230721
  Serious: No
  Sender: FDA-Public Use
  Company Number: US-002147023-NVSC2023US087786

PATIENT
  Sex: Female

DRUGS (1)
  1. LETROZOLE [Suspect]
     Active Substance: LETROZOLE
     Indication: Multiple sclerosis
     Dosage: 20/0.4 MILLIGRAM PER MILLILITRE, QMO
     Route: 058

REACTIONS (1)
  - Hypersensitivity [Unknown]
